FAERS Safety Report 16017455 (Version 1)
Quarter: 2019Q1

REPORT INFORMATION
  Report Type: Spontaneous
  Country: US (occurrence: US)
  Receive Date: 20190228
  Receipt Date: 20190228
  Transmission Date: 20190418
  Serious: No
  Sender: FDA-Public Use
  Company Number: US-ABBVIE-18K-163-2270114-00

PATIENT
  Age: 67 Year
  Sex: Male

DRUGS (2)
  1. ANDROGEL [Suspect]
     Active Substance: TESTOSTERONE
     Dosage: 40.5 MG DAILY
     Route: 061
     Dates: start: 201801
  2. ANDROGEL [Suspect]
     Active Substance: TESTOSTERONE
     Indication: TRANS-SEXUALISM
     Dosage: 40.5 MG DAILY
     Route: 061
     Dates: end: 201801

REACTIONS (5)
  - Musculoskeletal pain [Not Recovered/Not Resolved]
  - Neck pain [Not Recovered/Not Resolved]
  - Swelling [Not Recovered/Not Resolved]
  - Arthritis [Unknown]
  - Off label use [Not Recovered/Not Resolved]

NARRATIVE: CASE EVENT DATE: 201801
